FAERS Safety Report 7332676-3 (Version None)
Quarter: 2011Q1

REPORT INFORMATION
  Report Type: 
  Country: None (occurrence: None)
  Receive Date: 20110304
  Receipt Date: 20110223
  Transmission Date: 20110831
  Serious: Yes (Hospitalization)
  Sender: FDA-Public Use
  Company Number: FR-SANOFI-AVENTIS-2010SA055529

PATIENT
  Age: 61 Year
  Sex: Female
  Weight: 52 kg

DRUGS (1)
  1. ARAVA [Suspect]
     Indication: RHEUMATOID ARTHRITIS
     Dates: start: 20100101, end: 20100101

REACTIONS (10)
  - SHOCK [None]
  - OEDEMA [None]
  - MALAISE [None]
  - VOMITING [None]
  - PYREXIA [None]
  - JAUNDICE [None]
  - ARTHRALGIA [None]
  - DYSPNOEA [None]
  - LIVER INJURY [None]
  - NAUSEA [None]
